FAERS Safety Report 9015309 (Version 1)
Quarter: 2013Q1

REPORT INFORMATION
  Report Type: Spontaneous
  Country: US (occurrence: None)
  Receive Date: 20130109
  Receipt Date: 20130109
  Transmission Date: 20140127
  Serious: Yes (Congenital Anomaly)
  Sender: FDA-Public Use
  Company Number: None

PATIENT
  Age: 20 Year
  Sex: Female
  Weight: 61.24 kg

DRUGS (1)
  1. TRAMADOL HCL [Suspect]
     Indication: CHONDROMALACIA
     Dosage: 1 PILL A DAY 4X MOUTH
     Route: 048
     Dates: start: 2000

REACTIONS (2)
  - Autism [None]
  - Exposure during pregnancy [None]
